FAERS Safety Report 5701691-5 (Version None)
Quarter: 2008Q2

REPORT INFORMATION
  Report Type: 
  Country: None (occurrence: None)
  Receive Date: 20080409
  Receipt Date: 20080409
  Transmission Date: 20081010
  Serious: Yes (Other)
  Sender: FDA-Public Use
  Company Number: None

PATIENT
  Sex: Female
  Weight: 86.1834 kg

DRUGS (1)
  1. PROGESTERONE [Suspect]
     Indication: INFERTILITY
     Dosage: ONCE DAILY IM
     Route: 030
     Dates: start: 20080312, end: 20080318

REACTIONS (5)
  - ABORTION SPONTANEOUS [None]
  - DRUG EXPOSURE DURING PREGNANCY [None]
  - FOETAL HEART RATE ABNORMAL [None]
  - HAEMATOMA [None]
  - PHARMACEUTICAL PRODUCT COMPLAINT [None]
